FAERS Safety Report 7019576-3 (Version None)
Quarter: 2010Q3

REPORT INFORMATION
  Report Type: 
  Country: None (occurrence: None)
  Receive Date: 20100928
  Receipt Date: 20100928
  Transmission Date: 20110219
  Serious: Yes (Other)
  Sender: FDA-Public Use
  Company Number: None

PATIENT
  Age: 25 Year
  Sex: Female
  Weight: 63.5036 kg

DRUGS (11)
  1. MIRENA [Suspect]
  2. BUPROPION HCL [Concomitant]
  3. BUPROPION HCL [Concomitant]
  4. PREGABALIN [Concomitant]
  5. FAMOTIDINE [Concomitant]
  6. FISH OIL [Concomitant]
  7. B12 - PLUS B SUPPLEMENT [Concomitant]
  8. NIACIN [Concomitant]
  9. VITAMIN B COMPLEX CAP [Concomitant]
  10. IRON [Concomitant]
  11. MULTI-VITAMIN [Concomitant]

REACTIONS (10)
  - ABDOMINAL DISTENSION [None]
  - ABDOMINAL PAIN [None]
  - CHEST PAIN [None]
  - CONSTIPATION [None]
  - DIZZINESS [None]
  - FATIGUE [None]
  - MUSCLE SPASMS [None]
  - PAIN [None]
  - SYNCOPE [None]
  - VULVOVAGINAL DISCOMFORT [None]
